FAERS Safety Report 6428398-3 (Version None)
Quarter: 2009Q4

REPORT INFORMATION
  Report Type: 
  Country: None (occurrence: None)
  Receive Date: 20091105
  Receipt Date: 20091026
  Transmission Date: 20100525
  Serious: Yes (Death, Hospitalization)
  Sender: FDA-Public Use
  Company Number: A0764894A

PATIENT
  Age: 74 Year
  Sex: Male

DRUGS (17)
  1. ADVAIR DISKUS 100/50 [Suspect]
     Indication: ASTHMA
     Dosage: 2PUFF TWICE PER DAY
     Route: 055
     Dates: start: 20030905
  2. SEREVENT [Suspect]
     Indication: ASTHMA
     Dosage: 2PUFF TWICE PER DAY
     Route: 055
  3. METHADONE [Concomitant]
  4. SPIRIVA [Concomitant]
  5. PREDNISONE TAB [Concomitant]
  6. OXYGEN [Concomitant]
  7. DIGOXIN [Concomitant]
  8. DUONEB [Concomitant]
  9. CARDIZEM [Concomitant]
  10. ATIVAN [Concomitant]
  11. ALBUTEROL [Concomitant]
  12. THEOPHYLLINE [Concomitant]
  13. AZMACORT [Concomitant]
  14. COMBIVENT [Concomitant]
  15. CORTICOSTEROIDS [Concomitant]
     Route: 055
  16. BETA AGONIST [Concomitant]
  17. ALBUTEROL/ATROVENT [Concomitant]

REACTIONS (6)
  - ASTHMA [None]
  - CHRONIC OBSTRUCTIVE PULMONARY DISEASE [None]
  - EMPHYSEMA [None]
  - PNEUMONIA [None]
  - RESPIRATORY FAILURE [None]
  - SEPTIC SHOCK [None]
